FAERS Safety Report 6266427-0 (Version None)
Quarter: 2009Q3

REPORT INFORMATION
  Report Type: 
  Country: None (occurrence: None)
  Receive Date: 20090713
  Receipt Date: 20090305
  Transmission Date: 20100115
  Serious: Yes (Other)
  Sender: FDA-Public Use
  Company Number: AU-AVENTIS-200910563GDDC

PATIENT
  Age: 78 Year
  Sex: Female

DRUGS (8)
  1. ARAVA [Suspect]
     Indication: RHEUMATOID ARTHRITIS
     Route: 048
     Dates: start: 20040930
  2. PREDNISONE [Concomitant]
     Indication: RHEUMATOID ARTHRITIS
     Dosage: DOSE: UNK
  3. METHOTREXATE SODIUM [Concomitant]
     Indication: RHEUMATOID ARTHRITIS
     Dosage: DOSE: UNK
  4. PLAQUENIL                          /00072601/ [Concomitant]
     Indication: RHEUMATOID ARTHRITIS
     Dosage: DOSE: UNK
  5. MOBIC [Concomitant]
     Indication: RHEUMATOID ARTHRITIS
     Dosage: DOSE: UNK
  6. BUPRENORPHINE HCL [Concomitant]
     Indication: PAIN MANAGEMENT
     Dosage: DOSE: UNK
  7. PANADEINE                          /00116401/ [Concomitant]
     Indication: PAIN MANAGEMENT
     Dosage: DOSE: UNK
  8. EFFEXOR [Concomitant]
     Indication: DEPRESSION
     Dosage: DOSE: UNK

REACTIONS (1)
  - NERVE COMPRESSION [None]
